FAERS Safety Report 15326836 (Version 3)
Quarter: 2018Q3

REPORT INFORMATION
  Report Type: Spontaneous
  Country: US (occurrence: US)
  Receive Date: 20180828
  Receipt Date: 20180910
  Transmission Date: 20181010
  Serious: Yes (Other)
  Sender: FDA-Public Use
  Company Number: US-SA-2018SA229724

PATIENT
  Age: 59 Year
  Sex: Male

DRUGS (1)
  1. TOUJEO [Suspect]
     Active Substance: INSULIN GLARGINE
     Indication: TYPE 2 DIABETES MELLITUS
     Dosage: 170 UNITS, QD
     Route: 065

REACTIONS (3)
  - Diabetes mellitus inadequate control [Unknown]
  - Syringe issue [Unknown]
  - Extra dose administered [Unknown]
